FAERS Safety Report 5113976-4 (Version None)
Quarter: 2006Q3

REPORT INFORMATION
  Report Type: 
  Country: None (occurrence: None)
  Receive Date: 20060925
  Receipt Date: 20060222
  Transmission Date: 20061208
  Serious: Yes (Death, Other)
  Sender: FDA-Public Use
  Company Number: PHBS2006JP02958

PATIENT
  Age: 28 Year
  Sex: Male

DRUGS (5)
  1. CYCLOSPORINE [Suspect]
     Indication: CORD BLOOD TRANSPLANT THERAPY
     Dosage: UNK, UNK
     Route: 065
  2. IRRADIATION [Concomitant]
  3. HEMODIALYSIS [Concomitant]
  4. CYTARABINE [Concomitant]
  5. CYCLOPHOSPHAMIDE [Concomitant]

REACTIONS (13)
  - ADENOVIRAL HAEMORRHAGIC CYSTITIS [None]
  - ADENOVIRUS INFECTION [None]
  - CANDIDA SEPSIS [None]
  - CARDIAC FAILURE CONGESTIVE [None]
  - DIALYSIS [None]
  - ENDOTOXIC SHOCK [None]
  - GASTROINTESTINAL HAEMORRHAGE [None]
  - HYDRONEPHROSIS [None]
  - NEPHROPATHY [None]
  - PNEUMONIA [None]
  - PULMONARY ALVEOLAR HAEMORRHAGE [None]
  - RENAL FAILURE ACUTE [None]
  - VIRAEMIA [None]
